FAERS Safety Report 4366848-7 (Version None)
Quarter: 2004Q2

REPORT INFORMATION
  Report Type: 
  Country: None (occurrence: None)
  Receive Date: 20040528
  Receipt Date: 20040218
  Transmission Date: 20050107
  Serious: No
  Sender: FDA-Public Use
  Company Number: US-GLAXOSMITHKLINE-A0498743A

PATIENT
  Age: 4 Year
  Sex: Female

DRUGS (1)
  1. BACTROBAN [Suspect]
     Indication: IMPETIGO
     Route: 061
     Dates: start: 20040217, end: 20040217

REACTIONS (1)
  - URTICARIA [None]
